FAERS Safety Report 7819485-3 (Version None)
Quarter: 2011Q4

REPORT INFORMATION
  Report Type: 
  Country: None (occurrence: None)
  Receive Date: 20111018
  Receipt Date: 20110202
  Transmission Date: 20120403
  Serious: No
  Sender: FDA-Public Use
  Company Number: US-ASTRAZENECA-2011SE05913

PATIENT
  Age: 72 Year
  Sex: Female

DRUGS (4)
  1. SPIRIVA [Concomitant]
  2. AZOR [Concomitant]
  3. ASPIRIN [Concomitant]
  4. SYMBICORT [Suspect]
     Indication: CHRONIC OBSTRUCTIVE PULMONARY DISEASE
     Dosage: 80/4.5 MCG BID
     Route: 055

REACTIONS (5)
  - OESOPHAGEAL HAEMORRHAGE [None]
  - OROPHARYNGEAL PAIN [None]
  - DYSPHONIA [None]
  - HAEMOPTYSIS [None]
  - COUGH [None]
